FAERS Safety Report 7854849-3 (Version None)
Quarter: 2011Q4

REPORT INFORMATION
  Report Type: 
  Country: None (occurrence: None)
  Receive Date: 20111026
  Receipt Date: 20111020
  Transmission Date: 20120403
  Serious: Yes (Hospitalization)
  Sender: FDA-Public Use
  Company Number: IE-AMGEN-IRLSP2011051581

PATIENT
  Age: 82 Year
  Sex: Male

DRUGS (8)
  1. AMOXICILLIN [Concomitant]
  2. ARANESP [Suspect]
     Dosage: 20 MUG, QWK
     Route: 058
  3. ONE ALPHA [Concomitant]
  4. CLARITHROMYCIN [Concomitant]
  5. FOLIC ACID [Concomitant]
  6. BETALOC                            /00376902/ [Concomitant]
  7. CITALOPRAM HYDROBROMIDE [Concomitant]
  8. ARANESP [Suspect]
     Indication: PRODUCT USED FOR UNKNOWN INDICATION
     Dosage: 20 MUG, QWK
     Route: 058
     Dates: start: 20110914

REACTIONS (3)
  - LOWER RESPIRATORY TRACT INFECTION [None]
  - DYSPNOEA [None]
  - ASTHENIA [None]
